FAERS Safety Report 6073033-X (Version None)
Quarter: 2009Q1

REPORT INFORMATION
  Report Type: 
  Country: None (occurrence: None)
  Receive Date: 20090209
  Receipt Date: 20090209
  Transmission Date: 20090719
  Serious: Yes (Other)
  Sender: FDA-Public Use
  Company Number: None

PATIENT
  Sex: Female
  Weight: 84.369 kg

DRUGS (1)
  1. OSMOPREP [Suspect]
     Indication: COLONOSCOPY
     Dosage: 1.5G TAB * 4 EVERY 15 MIN * 5 ORAL
     Route: 048
     Dates: end: 20090121

REACTIONS (5)
  - ASTHENIA [None]
  - DRUG EFFECT DECREASED [None]
  - GAIT DISTURBANCE [None]
  - MIGRAINE [None]
  - PROCEDURAL COMPLICATION [None]
